FAERS Safety Report 7486467-3 (Version None)
Quarter: 2011Q2

REPORT INFORMATION
  Report Type: 
  Country: None (occurrence: None)
  Receive Date: 20110516
  Receipt Date: 20110516
  Transmission Date: 20111010
  Serious: No
  Sender: FDA-Public Use
  Company Number: None

PATIENT
  Age: 43 Year
  Sex: Male
  Weight: 68.0396 kg

DRUGS (1)
  1. GEODON [Suspect]
     Indication: SCHIZOPHRENIA
     Dosage: 160MG Q 5PM PO
     Route: 048
     Dates: start: 20101215, end: 20101216

REACTIONS (2)
  - BRUXISM [None]
  - MOVEMENT DISORDER [None]
